FAERS Safety Report 7026570-5 (Version None)
Quarter: 2010Q4

REPORT INFORMATION
  Report Type: 
  Country: None (occurrence: None)
  Receive Date: 20101004
  Receipt Date: 20100923
  Transmission Date: 20110411
  Serious: Yes (Hospitalization)
  Sender: FDA-Public Use
  Company Number: SE-ASTRAZENECA-2010SE44868

PATIENT
  Age: 83 Year
  Sex: Female

DRUGS (11)
  1. ATACAND HCT [Suspect]
     Indication: ESSENTIAL HYPERTENSION
     Route: 048
     Dates: end: 20100720
  2. METOPROLOL TARTRATE [Suspect]
     Route: 048
  3. DIGOXIN BIOPHAUSIA [Suspect]
     Indication: ATRIAL FIBRILLATION
     Route: 048
     Dates: end: 20100720
  4. OMEPRAZOLE [Concomitant]
     Route: 048
  5. TRAVATAN [Concomitant]
     Dosage: 40 UG/ML
  6. KALCIPOS-D [Concomitant]
  7. SIMVASTATIN [Concomitant]
  8. ZOLPIDEM [Concomitant]
  9. AMLODIPINE [Concomitant]
  10. LEVOTHYROXINE SODIUM [Concomitant]
  11. WARAN [Concomitant]

REACTIONS (5)
  - BLOOD PRESSURE SYSTOLIC INCREASED [None]
  - DRUG THERAPEUTIC INCOMPATIBILITY [None]
  - HYPONATRAEMIA [None]
  - SYNCOPE [None]
  - TACHYCARDIA [None]
